FAERS Safety Report 11489316 (Version 1)
Quarter: 2015Q3

REPORT INFORMATION
  Report Type: Spontaneous
  Country: TR (occurrence: TR)
  Receive Date: 20150910
  Receipt Date: 20150910
  Transmission Date: 20151125
  Serious: Yes (Death, Hospitalization)
  Sender: FDA-Public Use
  Company Number: TR-SA-2015SA136056

PATIENT
  Sex: Female
  Weight: 55 kg

DRUGS (2)
  1. ARAVA [Suspect]
     Active Substance: LEFLUNOMIDE
     Indication: SJOGREN^S SYNDROME
     Route: 048
     Dates: start: 201505, end: 201507
  2. URSOFALK [Concomitant]
     Active Substance: URSODIOL
     Indication: BILE DUCT OBSTRUCTION
     Route: 048
     Dates: start: 2005

REACTIONS (1)
  - Pancytopenia [Fatal]

NARRATIVE: CASE EVENT DATE: 201507
